FAERS Safety Report 9210756 (Version 1)
Quarter: 2013Q2

REPORT INFORMATION
  Report Type: Report from Study
  Country: IN (occurrence: IN)
  Receive Date: 20130404
  Receipt Date: 20130404
  Transmission Date: 20140414
  Serious: Yes (Other)
  Sender: FDA-Public Use
  Company Number: IN-BAYER-2013-037873

PATIENT
  Age: 62 Year
  Sex: Male

DRUGS (2)
  1. CIPROFLOXACIN [Suspect]
     Route: 042
  2. CEFTAZIDIME [Suspect]
     Route: 042

REACTIONS (1)
  - Status epilepticus [None]
